FAERS Safety Report 5178813-0 (Version None)
Quarter: 2006Q4

REPORT INFORMATION
  Report Type: 
  Country: None (occurrence: None)
  Receive Date: 20061208
  Receipt Date: 20061128
  Transmission Date: 20070319
  Serious: Yes (Other)
  Sender: FDA-Public Use
  Company Number: 2006145762

PATIENT
  Age: 66 Year
  Sex: Female
  Weight: 37.195 kg

DRUGS (3)
  1. GEODON [Suspect]
     Indication: BIPOLAR DISORDER
     Dosage: 60 MG (60 MG, 1 IN 1 D)
     Dates: start: 20060101, end: 20060101
  2. GEODON [Suspect]
     Indication: INSOMNIA
     Dosage: 60 MG (60 MG, 1 IN 1 D)
     Dates: start: 20060101, end: 20060101
  3. SEROQUEL [Concomitant]

REACTIONS (2)
  - IMMOBILE [None]
  - SEDATION [None]
